FAERS Safety Report 12550325 (Version 2)
Quarter: 2016Q3

REPORT INFORMATION
  Report Type: Spontaneous
  Country: US (occurrence: US)
  Receive Date: 20160712
  Receipt Date: 20160720
  Transmission Date: 20161109
  Serious: No
  Sender: FDA-Public Use
  Company Number: GXBR2016US002088

PATIENT
  Sex: Female

DRUGS (1)
  1. AMPICILLIN CAPSULES USP [Suspect]
     Active Substance: AMPICILLIN
     Indication: GINGIVITIS
     Dosage: UNK DF, UNK
     Route: 065

REACTIONS (1)
  - Infection [Unknown]
